FAERS Safety Report 4838272-1 (Version None)
Quarter: 2005Q4

REPORT INFORMATION
  Report Type: 
  Country: None (occurrence: None)
  Receive Date: 20051123
  Receipt Date: 20051110
  Transmission Date: 20060501
  Serious: Yes (Hospitalization)
  Sender: FDA-Public Use
  Company Number: 2005155941

PATIENT
  Sex: Female

DRUGS (1)
  1. XALATAN [Suspect]
     Indication: GLAUCOMA
     Dosage: 1 DROP (1 DROP, 1 IN 1 D), OPHTHALMIC
     Route: 047
     Dates: start: 19981110

REACTIONS (4)
  - HAEMORRHAGE [None]
  - NEOPLASM [None]
  - RENAL CELL CARCINOMA STAGE UNSPECIFIED [None]
  - ULCER [None]
